FAERS Safety Report 9774839 (Version 1)
Quarter: 2013Q4

REPORT INFORMATION
  Report Type: Spontaneous
  Country: US (occurrence: None)
  Receive Date: 20131219
  Receipt Date: 20131219
  Transmission Date: 20140711
  Serious: Yes (Other)
  Sender: FDA-Public Use
  Company Number: None

PATIENT
  Age: 74 Year
  Sex: Female
  Weight: 63.5 kg

DRUGS (8)
  1. FOSAMAX [Suspect]
     Indication: OSTEOPOROSIS
     Route: 048
     Dates: start: 201104
  2. ATIVAN [Concomitant]
  3. BABY ASPIRIN [Concomitant]
  4. NORVASC [Concomitant]
  5. METROPOLOL [Concomitant]
  6. WELL-BUTRIN [Concomitant]
  7. MELLANIL [Concomitant]
  8. CENTRUM SILVER [Concomitant]

REACTIONS (3)
  - Loose tooth [None]
  - Tooth discolouration [None]
  - Oral infection [None]
